FAERS Safety Report 23422122 (Version 2)
Quarter: 2024Q1

REPORT INFORMATION
  Report Type: Spontaneous
  Country: US (occurrence: US)
  Receive Date: 20240119
  Receipt Date: 20240125
  Transmission Date: 20240410
  Serious: No
  Sender: FDA-Public Use
  Company Number: US-PFIZER INC-PV202400008162

PATIENT
  Age: 73 Year
  Sex: Female

DRUGS (5)
  1. ZITHROMAX [Suspect]
     Active Substance: AZITHROMYCIN DIHYDRATE
     Indication: Lower respiratory tract infection bacterial
     Dosage: ZITHROMAX 500 MG PO (PER ORAL) DAILY
     Route: 048
     Dates: start: 20200910
  2. ETHAMBUTOL [Suspect]
     Active Substance: ETHAMBUTOL HYDROCHLORIDE
     Indication: Lower respiratory tract infection bacterial
     Dosage: 400 MG PO (PER ORAL) BID (TWICE A DAY)
     Route: 048
     Dates: start: 20200910
  3. RIFAMPIN [Suspect]
     Active Substance: RIFAMPIN
     Dosage: UNK
     Dates: start: 20200930
  4. ARIKAYCE [Suspect]
     Active Substance: AMIKACIN
     Dosage: 590 MG
     Route: 055
     Dates: start: 20210708
  5. BACTRIM DS [Concomitant]
     Active Substance: SULFAMETHOXAZOLE\TRIMETHOPRIM
     Indication: Prophylaxis
     Dosage: ONE DS TAB DAILY

REACTIONS (1)
  - Treatment failure [Unknown]
